FAERS Safety Report 12681790 (Version 1)
Quarter: 2016Q3

REPORT INFORMATION
  Report Type: Spontaneous
  Country: NG (occurrence: NG)
  Receive Date: 20160824
  Receipt Date: 20160824
  Transmission Date: 20161109
  Serious: Yes (Disabling, Other)
  Sender: FDA-Public Use
  Company Number: NG-BAYER-2016-157452

PATIENT
  Age: 25 Year
  Sex: Male

DRUGS (2)
  1. PREDNISOLONE. [Concomitant]
     Active Substance: PREDNISOLONE
     Dosage: 10 MG, TID
     Route: 048
  2. PRAZIQUANTEL [Suspect]
     Active Substance: PRAZIQUANTEL
     Indication: CESTODE INFECTION
     Dosage: 25 MG/KG, FOR 4 DAYS
     Route: 048
     Dates: start: 19880205

REACTIONS (3)
  - Off label use [None]
  - Blindness [None]
  - Endophthalmitis [None]
